FAERS Safety Report 19355270 (Version 1)
Quarter: 2021Q2

REPORT INFORMATION
  Report Type: Spontaneous
  Country: US (occurrence: US)
  Receive Date: 20210601
  Receipt Date: 20210601
  Transmission Date: 20210717
  Serious: No
  Sender: FDA-Public Use
  Company Number: US-DRREDDYS-USA/USA/21/0135954

PATIENT
  Age: 61 Year
  Sex: Female
  Weight: 53.1 kg

DRUGS (1)
  1. IBANDRONATE SODIUM TABLETS 150 MG [Suspect]
     Active Substance: IBANDRONATE SODIUM
     Indication: OSTEOPOROSIS
     Dates: start: 20210523

REACTIONS (9)
  - Decreased appetite [Unknown]
  - Restlessness [Unknown]
  - Nausea [Unknown]
  - Pain [Unknown]
  - Myalgia [Unknown]
  - Headache [Unknown]
  - Dyspepsia [Unknown]
  - Influenza like illness [Unknown]
  - Illness [Unknown]
